FAERS Safety Report 9413826 (Version 2)
Quarter: 2013Q4

REPORT INFORMATION
  Report Type: Spontaneous
  Country: FR (occurrence: FR)
  Receive Date: 20130723
  Receipt Date: 20131009
  Transmission Date: 20140711
  Serious: Yes (Hospitalization)
  Sender: FDA-Public Use
  Company Number: FR-PFIZER INC-2013213501

PATIENT
  Age: 74 Year
  Sex: Male

DRUGS (8)
  1. CORDARONE [Suspect]
     Indication: ATRIAL FIBRILLATION
     Dosage: 400 MG, DAILY
     Route: 048
     Dates: start: 201203, end: 20121115
  2. LERCAN [Concomitant]
     Dosage: UNK
  3. PARIET [Concomitant]
     Dosage: UNK
  4. CARDENSIEL [Concomitant]
     Dosage: UNK
  5. LASILIX [Concomitant]
     Dosage: UNK
  6. NOVONORM [Concomitant]
     Dosage: UNK
  7. DIFFU K [Concomitant]
     Dosage: UNK
  8. PREVISCAN [Concomitant]
     Dosage: UNK

REACTIONS (2)
  - Blood thyroid stimulating hormone increased [Not Recovered/Not Resolved]
  - Femur fracture [Unknown]
